FAERS Safety Report 6222015-3 (Version None)
Quarter: 2009Q2

REPORT INFORMATION
  Report Type: 
  Country: None (occurrence: None)
  Receive Date: 20090608
  Receipt Date: 20090608
  Transmission Date: 20091009
  Serious: Yes (Hospitalization, Other)
  Sender: FDA-Public Use
  Company Number: None

PATIENT
  Age: 9 Year
  Sex: Male
  Weight: 29.4838 kg

DRUGS (1)
  1. AMPHETAMINE SALTS ER 15MG CBBRR [Suspect]
     Indication: ATTENTION DEFICIT/HYPERACTIVITY DISORDER
     Dosage: 1 CAPSULE ONCE A DAY PO
     Route: 048
     Dates: start: 20070901, end: 20090605

REACTIONS (4)
  - ABNORMAL BEHAVIOUR [None]
  - HALLUCINATION, VISUAL [None]
  - MIDDLE INSOMNIA [None]
  - SLEEP TERROR [None]
